FAERS Safety Report 24220149 (Version 1)
Quarter: 2024Q3

REPORT INFORMATION
  Report Type: Spontaneous
  Country: JP (occurrence: JP)
  Receive Date: 20240817
  Receipt Date: 20240817
  Transmission Date: 20241016
  Serious: Yes (Death, Other)
  Sender: Vantive US Healthcare
  Company Number: JP-VANTIVE-2024VAN018629

PATIENT
  Age: 9 Decade
  Sex: Female

DRUGS (1)
  1. REGUNEAL LCA [Suspect]
     Active Substance: CALCIUM CHLORIDE\DEXTROSE MONOHYDRATE\HYDROCHLORIC ACID\MAGNESIUM CHLORIDE\SODIUM BICARBONATE\SODIUM
     Indication: Chronic kidney disease
     Dosage: 1500 ML 4 TIMES
     Route: 033
     Dates: start: 20210820

REACTIONS (3)
  - Renal failure [Fatal]
  - Cardiac failure [Fatal]
  - Asthenia [Unknown]
